APPROVED DRUG PRODUCT: LAMOTRIGINE
Active Ingredient: LAMOTRIGINE
Strength: 200MG
Dosage Form/Route: TABLET;ORAL
Application: A200694 | Product #004 | TE Code: AB
Applicant: ALKEM LABORATORIES LTD
Approved: Jun 14, 2013 | RLD: No | RS: No | Type: RX